FAERS Safety Report 9400050 (Version 1)
Quarter: 2013Q3

REPORT INFORMATION
  Report Type: Spontaneous
  Country: US (occurrence: US)
  Receive Date: 20130715
  Receipt Date: 20130715
  Transmission Date: 20140515
  Serious: No
  Sender: FDA-Public Use
  Company Number: US-TEVA-399614USA

PATIENT
  Age: 77 Year
  Sex: Male

DRUGS (2)
  1. SYNRIBO [Suspect]
     Indication: CHRONIC MYELOID LEUKAEMIA
     Dosage: 5.5 MILLIGRAM DAILY;
     Route: 051
     Dates: start: 20130415
  2. SYNRIBO [Suspect]
     Dosage: 2.75 MILLIGRAM DAILY;
     Route: 051
     Dates: start: 20130416

REACTIONS (3)
  - Injection site erythema [Unknown]
  - Injection site pain [Unknown]
  - Inappropriate schedule of drug administration [Unknown]
